FAERS Safety Report 23288837 (Version 1)
Quarter: 2023Q4

REPORT INFORMATION
  Report Type: Spontaneous
  Country: FR (occurrence: FR)
  Receive Date: 20231212
  Receipt Date: 20231212
  Transmission Date: 20240110
  Serious: Yes (Other)
  Sender: FDA-Public Use
  Company Number: None

PATIENT
  Age: 9 Year
  Sex: Female
  Weight: 54 kg

DRUGS (1)
  1. CLARITHROMYCIN [Suspect]
     Active Substance: CLARITHROMYCIN
     Indication: Product used for unknown indication
     Dosage: 2 TABS MORNING AND 2 TABS IN THE EVENING INSTEAD OF 1 TAB MORNING AND EVENING
     Route: 048
     Dates: start: 202309

REACTIONS (4)
  - Abdominal pain [Recovering/Resolving]
  - Hallucination [Recovering/Resolving]
  - Diarrhoea [Recovering/Resolving]
  - Wrong dose [Recovering/Resolving]

NARRATIVE: CASE EVENT DATE: 20230917
